FAERS Safety Report 23112774 (Version 3)
Quarter: 2023Q4

REPORT INFORMATION
  Report Type: Spontaneous
  Country: JP (occurrence: JP)
  Receive Date: 20231027
  Receipt Date: 20231214
  Transmission Date: 20240110
  Serious: Yes (Hospitalization, Other)
  Sender: FDA-Public Use
  Company Number: JP-TAKEDA-2023TJP012529

PATIENT
  Age: 4 Year
  Sex: Male
  Weight: 14 kg

DRUGS (10)
  1. TEDUGLUTIDE [Suspect]
     Active Substance: TEDUGLUTIDE
     Indication: Short-bowel syndrome
     Dosage: 0.65 MILLIGRAM, QD
     Route: 058
     Dates: start: 20230921
  2. TEDUGLUTIDE [Suspect]
     Active Substance: TEDUGLUTIDE
     Indication: Short-bowel syndrome
     Dosage: 0.65 MILLIGRAM, QD
     Route: 058
     Dates: start: 20230921
  3. TEDUGLUTIDE [Suspect]
     Active Substance: TEDUGLUTIDE
     Indication: Short-bowel syndrome
     Dosage: 0.65 MILLIGRAM, QD
     Route: 058
     Dates: start: 20230921
  4. TEDUGLUTIDE [Suspect]
     Active Substance: TEDUGLUTIDE
     Indication: Short-bowel syndrome
     Dosage: 0.65 MILLIGRAM, QD
     Route: 058
     Dates: start: 20230921
  5. AMINO ACIDS\DEXTROSE\ELECTROLYTES NOS\MINERALS\VITAMINS [Concomitant]
     Active Substance: AMINO ACIDS\DEXTROSE\ELECTROLYTES NOS\MINERALS\VITAMINS
     Dosage: UNK
     Route: 042
  6. ASELEND [Concomitant]
     Dosage: UNK
     Route: 042
  7. AMINO ACIDS\CARBOHYDRATES\MINERALS\SOYBEAN OIL\VITAMINS [Concomitant]
     Active Substance: AMINO ACIDS\CARBOHYDRATES\MINERALS\SOYBEAN OIL\VITAMINS
     Dosage: UNK
     Route: 048
  8. NGENLA [Concomitant]
     Active Substance: SOMATROGON-GHLA
     Dosage: 8.8 MILLIGRAM, 1/WEEK
     Route: 065
  9. LEVOTHYROXINE SODIUM [Concomitant]
     Active Substance: LEVOTHYROXINE SODIUM
     Dosage: 55 MICROGRAM, QD
     Route: 048
  10. LOPEMIN [Concomitant]
     Dosage: 0.05 MILLIGRAM, BID
     Route: 065

REACTIONS (6)
  - COVID-19 [Recovering/Resolving]
  - Rhinovirus infection [Recovering/Resolving]
  - Vascular device infection [Recovering/Resolving]
  - Off label use [Unknown]
  - Product selection error [Unknown]
  - Hand-foot-and-mouth disease [Recovering/Resolving]

NARRATIVE: CASE EVENT DATE: 20230921
